FAERS Safety Report 14354547 (Version 1)
Quarter: 2018Q1

REPORT INFORMATION
  Report Type: Spontaneous
  Country: FR (occurrence: FR)
  Receive Date: 20180105
  Receipt Date: 20180105
  Transmission Date: 20180509
  Serious: Yes (Other)
  Sender: FDA-Public Use
  Company Number: FR-MYLANLABS-2017M1079636

PATIENT
  Sex: Female
  Weight: 50 kg

DRUGS (3)
  1. BUPIVACAINE MYLAN 20 MG/4 ML, SOLUTION FOR INJECTION [Suspect]
     Active Substance: BUPIVACAINE
     Indication: ANAESTHESIA
     Dosage: 8 MG, UNK
     Route: 037
     Dates: start: 201711
  2. SUFENTANIL [Concomitant]
     Active Substance: SUFENTANIL
     Indication: PRODUCT USED FOR UNKNOWN INDICATION
     Dosage: 2.5 ?G, UNK
     Route: 037
  3. MORPHINE [Concomitant]
     Active Substance: MORPHINE
     Indication: PRODUCT USED FOR UNKNOWN INDICATION
     Dosage: 100 ?G, UNK

REACTIONS (2)
  - Drug ineffective [Unknown]
  - No adverse event [Unknown]
